FAERS Safety Report 16736587 (Version 1)
Quarter: 2019Q3

REPORT INFORMATION
  Report Type: Spontaneous
  Country: US (occurrence: US)
  Receive Date: 20190823
  Receipt Date: 20190823
  Transmission Date: 20191005
  Serious: No
  Sender: FDA-Public Use
  Company Number: US-BIOCODEX SA-201900461

PATIENT
  Sex: Male

DRUGS (1)
  1. DIACOMIT [Suspect]
     Active Substance: STIRIPENTOL
     Indication: PRODUCT USED FOR UNKNOWN INDICATION
     Dosage: 500 MG, QD
     Route: 048
     Dates: start: 20190510

REACTIONS (4)
  - Psychomotor hyperactivity [Unknown]
  - Abdominal discomfort [Unknown]
  - Sleep disorder [Unknown]
  - Fatigue [Unknown]
